FAERS Safety Report 18402874 (Version 2)
Quarter: 2020Q4

REPORT INFORMATION
  Report Type: Spontaneous
  Country: FR (occurrence: FR)
  Receive Date: 20201019
  Receipt Date: 20201022
  Transmission Date: 20210114
  Serious: Yes (Other)
  Sender: FDA-Public Use
  Company Number: FR-GILEAD-2020-0499441

PATIENT
  Age: 63 Year
  Sex: Male

DRUGS (2)
  1. IDELALISIB [Suspect]
     Active Substance: IDELALISIB
     Indication: B-CELL LYMPHOMA
     Dosage: 150 MG, BID
     Route: 065
  2. RITUXIMAB. [Concomitant]
     Active Substance: RITUXIMAB
     Indication: B-CELL LYMPHOMA
     Dosage: 1 DOSAGE FORM, Q1MONTH

REACTIONS (4)
  - Pyrexia [Recovering/Resolving]
  - Rectal haemorrhage [Recovering/Resolving]
  - Disease progression [Unknown]
  - Abdominal pain [Recovering/Resolving]
